FAERS Safety Report 7960673 (Version 4)
Quarter: 2013Q1

REPORT INFORMATION
  Report Type: Report from Study
  Country: JP (occurrence: JP)
  Receive Date: 20110525
  Receipt Date: 20130306
  Transmission Date: 20140127
  Serious: Yes (Hospitalization, Other)
  Sender: FDA-Public Use
  Company Number: PHHY2011JP40400

PATIENT
  Age: 71 Year
  Sex: Female
  Weight: 68 kg

DRUGS (44)
  1. LEPONEX / CLOZARIL [Suspect]
     Indication: SCHIZOPHRENIA, UNDIFFERENTIATED TYPE
     Dosage: 12.5 MG, UNK
     Route: 048
     Dates: start: 20100213, end: 20100213
  2. LEPONEX / CLOZARIL [Suspect]
     Dosage: 25 MG, UNK
     Route: 048
     Dates: start: 20100214, end: 20100216
  3. LEPONEX / CLOZARIL [Suspect]
     Dosage: 50 MG, UNK
     Route: 048
     Dates: start: 20100217, end: 20100218
  4. LEPONEX / CLOZARIL [Suspect]
     Dosage: 75 MG, UNK
     Route: 048
     Dates: start: 20100219, end: 20100220
  5. LEPONEX / CLOZARIL [Suspect]
     Dosage: 100 MG, UNK
     Route: 048
     Dates: start: 20100221, end: 20100222
  6. LEPONEX / CLOZARIL [Suspect]
     Dosage: 125 MG, UNK
     Route: 048
     Dates: start: 20100223, end: 20100225
  7. LEPONEX / CLOZARIL [Suspect]
     Dosage: 150 MG, UNK
     Route: 048
     Dates: start: 20100226, end: 20100228
  8. LEPONEX / CLOZARIL [Suspect]
     Dosage: 175 MG, UNK
     Route: 048
     Dates: start: 20100301, end: 20100303
  9. LEPONEX / CLOZARIL [Suspect]
     Dosage: 200 MG, UNK
     Route: 048
     Dates: start: 20100304, end: 20100304
  10. LEPONEX / CLOZARIL [Suspect]
     Dosage: 150 MG, UNK
     Route: 048
     Dates: start: 20100305, end: 20100311
  11. LEPONEX / CLOZARIL [Suspect]
     Dosage: 175 MG, UNK
     Route: 048
     Dates: start: 20100312, end: 20100318
  12. LEPONEX / CLOZARIL [Suspect]
     Dosage: 200 MG, UNK
     Route: 048
     Dates: start: 20100319, end: 20100325
  13. LEPONEX / CLOZARIL [Suspect]
     Dosage: 225 MG, UNK
     Route: 048
     Dates: start: 20100326, end: 20100401
  14. LEPONEX / CLOZARIL [Suspect]
     Dosage: 250 MG, UNK
     Route: 048
     Dates: start: 20100402, end: 20100513
  15. LEPONEX / CLOZARIL [Suspect]
     Dosage: 275 MG, UNK
     Route: 048
     Dates: start: 20100514, end: 20100727
  16. LEPONEX / CLOZARIL [Suspect]
     Dosage: 300 MG, UNK
     Route: 048
     Dates: start: 20100728, end: 20100921
  17. LEPONEX / CLOZARIL [Suspect]
     Dosage: 325 MG, UNK
     Route: 048
     Dates: start: 20100922, end: 20101207
  18. LEPONEX / CLOZARIL [Suspect]
     Dosage: 300 MG, UNK
     Route: 048
     Dates: start: 20101208, end: 20101221
  19. LEPONEX / CLOZARIL [Suspect]
     Dosage: 325 MG, UNK
     Route: 048
     Dates: start: 20101222, end: 20110118
  20. LEPONEX / CLOZARIL [Suspect]
     Dosage: 350 MG, UNK
     Route: 048
     Dates: start: 20110119, end: 20110201
  21. LEPONEX / CLOZARIL [Suspect]
     Dosage: 375 MG, UNK
     Route: 048
     Dates: start: 20110202, end: 20110301
  22. LEPONEX / CLOZARIL [Suspect]
     Dosage: 350 MG, UNK
     Route: 048
     Dates: start: 20110302, end: 20110412
  23. LEPONEX / CLOZARIL [Suspect]
     Dosage: 375 MG, UNK
     Route: 048
     Dates: start: 20110413, end: 20110510
  24. LEPONEX / CLOZARIL [Suspect]
     Dosage: 350 MG, UNK
     Route: 048
     Dates: start: 20110511, end: 20110520
  25. LEPONEX / CLOZARIL [Suspect]
     Dosage: 200 MG, UNK
     Route: 048
     Dates: start: 20110521, end: 20110714
  26. LEPONEX / CLOZARIL [Suspect]
     Dosage: 250 MG, UNK
     Route: 048
     Dates: start: 20110715, end: 20111013
  27. LEPONEX / CLOZARIL [Suspect]
     Dosage: 300 MG, UNK
     Route: 048
     Dates: start: 20111014, end: 20111017
  28. LEPONEX / CLOZARIL [Suspect]
     Dosage: 325 MG, UNK
     Route: 048
     Dates: start: 20111028
  29. PURSENNID [Concomitant]
     Dosage: 24 MG, UNK
     Route: 048
     Dates: start: 20100813
  30. PURSENNID [Concomitant]
     Dosage: 12 MG, UNK
     Route: 048
  31. SEIBULE [Concomitant]
     Indication: DIABETES MELLITUS
     Dosage: 150 MG, UNK
     Route: 048
     Dates: end: 20110510
  32. MEDET [Concomitant]
     Indication: DIABETES MELLITUS
     Dosage: 1500 MG, UNK
     Route: 048
  33. MEDET [Concomitant]
     Dosage: 750 MG, UNK
     Route: 048
  34. MEDET [Concomitant]
     Dosage: 1500 MG, UNK
     Route: 048
     Dates: end: 20110510
  35. LANTUS [Concomitant]
     Indication: DIABETES MELLITUS
     Dosage: 4 IU, UNK
     Route: 048
     Dates: start: 20100226
  36. LANTUS [Concomitant]
     Dosage: 8 IU, UNK
     Route: 048
  37. FLUNITRAZEPAM [Concomitant]
     Indication: SCHIZOPHRENIA, UNDIFFERENTIATED TYPE
     Dosage: 2 MG, UNK
     Route: 048
     Dates: start: 20100513, end: 20111117
  38. MUCOTHIOL [Concomitant]
     Indication: BRONCHITIS CHRONIC
     Dosage: 250 MG, UNK
     Route: 048
     Dates: start: 20100513
  39. MUCOTHIOL [Concomitant]
     Dosage: 750 MG, UNK
     Route: 048
  40. BIOFERMIN [Concomitant]
     Indication: CONSTIPATION
     Dosage: 3000 MG, UNK
     Route: 048
     Dates: start: 20100513
  41. VICTOZA [Concomitant]
     Indication: DIABETES MELLITUS
     Dosage: 0.3 MG, UNK
     Dates: start: 20101124
  42. VICTOZA [Concomitant]
     Dosage: 0.6 MG, UNK
     Dates: end: 20110510
  43. ZOPICOOL [Concomitant]
     Indication: SCHIZOPHRENIA, UNDIFFERENTIATED TYPE
     Dosage: 7.5 MG, UNK
     Route: 048
     Dates: start: 20111118
  44. INSULIN [Concomitant]
     Dosage: 8 IU, UNK
     Dates: start: 20100813, end: 20101123

REACTIONS (8)
  - Loss of consciousness [Unknown]
  - General physical health deterioration [Unknown]
  - Fall [Unknown]
  - Neutrophil count increased [Unknown]
  - Haemoglobin decreased [Unknown]
  - Blood glucose increased [Unknown]
  - Glycosylated haemoglobin increased [Unknown]
  - Dizziness [Unknown]
